FAERS Safety Report 4461146-5 (Version None)
Quarter: 2004Q3

REPORT INFORMATION
  Report Type: 
  Country: None (occurrence: None)
  Receive Date: 20040923
  Receipt Date: 20040913
  Transmission Date: 20050211
  Serious: Yes (Death, Other)
  Sender: FDA-Public Use
  Company Number: US-JNJFOC-20040903665

PATIENT
  Age: 3 Year
  Sex: Female

DRUGS (2)
  1. IBUPROFEN [Suspect]
     Indication: ACCIDENTAL EXPOSURE
     Dosage: ORAL
     Route: 048
  2. TUSSIONEX [Suspect]
     Indication: ACCIDENTAL EXPOSURE
     Dosage: ORAL
     Route: 048

REACTIONS (9)
  - BLOOD BICARBONATE DECREASED [None]
  - BLOOD PH DECREASED [None]
  - BRAIN DEATH [None]
  - BRAIN HERNIATION [None]
  - BRAIN STEM INFARCTION [None]
  - CEREBRAL INFARCTION [None]
  - COMA [None]
  - CYANOSIS [None]
  - HEART RATE INCREASED [None]
